FAERS Safety Report 17263994 (Version 11)
Quarter: 2021Q2

REPORT INFORMATION
  Report Type: Report from Study
  Country: US (occurrence: US)
  Receive Date: 20200113
  Receipt Date: 20210602
  Transmission Date: 20210716
  Serious: Yes (Hospitalization, Other)
  Sender: FDA-Public Use
  Company Number: US-GILEAD-2019-0424540

PATIENT
  Age: 78 Year
  Sex: Male
  Weight: 90 kg

DRUGS (57)
  1. CALCIUM CHLORIDE. [Concomitant]
     Active Substance: CALCIUM CHLORIDE
     Dosage: 3000,MG,ONCE
     Route: 042
     Dates: start: 20190723, end: 20190723
  2. ANTICOAGULANT CITRATE DEXTROSE SOLUTION (ACD) NOS [Concomitant]
     Active Substance: CITRIC ACID MONOHYDRATE\DEXTROSE\SODIUM CITRATE
     Dosage: 1167,ML,ONCE
     Route: 050
     Dates: start: 20190723, end: 20190723
  3. PANTOPRAZOLE [Concomitant]
     Active Substance: PANTOPRAZOLE
     Dosage: 40,MG,DAILY
     Route: 048
     Dates: start: 20190813, end: 20190927
  4. CLARITIN?D NOS [Concomitant]
     Active Substance: LORATADINE\PSEUDOEPHEDRINE SULFATE
     Dosage: 10/240,MG,ONCE
     Route: 048
     Dates: start: 20190814, end: 20190814
  5. POLYETHYLENE GLYCOL [Concomitant]
     Active Substance: POLYETHYLENE GLYCOLS
     Dosage: 17,G,AS NECESSARY
     Route: 048
     Dates: start: 20190814, end: 20190817
  6. PENTAMIDINE [Concomitant]
     Active Substance: PENTAMIDINE
     Dosage: 300,MG,ONCE
     Route: 042
     Dates: start: 20190815, end: 20190815
  7. TRAMADOL. [Concomitant]
     Active Substance: TRAMADOL
     Dosage: 50,MG,AS NECESSARY
     Route: 048
     Dates: start: 20190902, end: 20190903
  8. AXICABTAGENE CILOLEUCEL [Suspect]
     Active Substance: AXICABTAGENE CILOLEUCEL
     Indication: DIFFUSE LARGE B-CELL LYMPHOMA
     Dosage: 68
     Route: 042
     Dates: start: 20190814, end: 20190814
  9. ONDANSETRON [Concomitant]
     Active Substance: ONDANSETRON
     Dosage: 8,MG,ONCE
     Route: 042
     Dates: start: 20190815, end: 20190815
  10. LEVETIRACETAM. [Concomitant]
     Active Substance: LEVETIRACETAM
     Dosage: 750,MG,TWICE DAILY
     Route: 048
     Dates: start: 20190814, end: 20190827
  11. CEFPODOXIME [Concomitant]
     Active Substance: CEFPODOXIME
     Dosage: 200,MG,TWICE DAILY
     Route: 048
     Dates: start: 20190814, end: 20190816
  12. MELATONIN [Concomitant]
     Active Substance: MELATONIN
     Dosage: 10,MG,DAILY
     Route: 048
     Dates: start: 20190823, end: 20190915
  13. FUROSEMIDE. [Concomitant]
     Active Substance: FUROSEMIDE
     Dosage: 40,MG,ONCE
     Route: 042
     Dates: start: 20190906, end: 20190908
  14. PLASMA?LYTE A [Concomitant]
     Active Substance: MAGNESIUM CHLORIDE\POTASSIUM CHLORIDE\SODIUM ACETATE\SODIUM CHLORIDE\SODIUM GLUCONATE
     Dosage: 75,OTHER,CONTINUOUS
     Route: 042
     Dates: start: 20190819, end: 20190820
  15. CYCLOPHOSPHAMIDE. [Suspect]
     Active Substance: CYCLOPHOSPHAMIDE
     Dosage: 500
     Route: 042
     Dates: start: 20190810, end: 20190810
  16. PREDNISONE. [Suspect]
     Active Substance: PREDNISONE
     Indication: DOUBLE HIT LYMPHOMA
     Dosage: UNK
     Route: 065
     Dates: start: 20190212, end: 20190605
  17. MELATONIN [Concomitant]
     Active Substance: MELATONIN
     Dosage: 2,MG,ONCE
     Route: 048
     Dates: start: 20190815, end: 20190815
  18. PENTAMIDINE [Concomitant]
     Active Substance: PENTAMIDINE
     Dosage: 300,MG,ONCE
     Route: 042
     Dates: start: 20190926, end: 20190926
  19. MORPHINE [Concomitant]
     Active Substance: MORPHINE
     Dosage: 8,MG,AS NECESSARY
     Route: 042
     Dates: start: 20190903, end: 20190904
  20. ISAVUCONAZONIUM [Concomitant]
     Active Substance: ISAVUCONAZONIUM
     Dosage: 372,MG,DAILY
     Route: 048
     Dates: start: 20190906, end: 20190916
  21. CYCLOPHOSPHAMIDE. [Suspect]
     Active Substance: CYCLOPHOSPHAMIDE
     Dosage: 500
     Route: 042
     Dates: start: 20190811, end: 20190811
  22. FLUDARABINE [Suspect]
     Active Substance: FLUDARABINE PHOSPHATE
     Dosage: 30
     Route: 042
     Dates: start: 20190810, end: 20190810
  23. MESNA. [Suspect]
     Active Substance: MESNA
     Dosage: 500
     Route: 042
     Dates: start: 20190811, end: 20190812
  24. DOXORUBICIN HYDROCHLORIDE. [Suspect]
     Active Substance: DOXORUBICIN HYDROCHLORIDE
     Indication: DOUBLE HIT LYMPHOMA
     Dosage: UNK
     Route: 065
     Dates: start: 20190212, end: 20190605
  25. FLUTICASONE. [Concomitant]
     Active Substance: FLUTICASONE
     Dosage: 1,OTHER,DAILY
     Route: 045
     Dates: start: 20170220
  26. POLYETHYLENE GLYCOL [Concomitant]
     Active Substance: POLYETHYLENE GLYCOLS
     Dosage: 17,G,DAILY
     Route: 048
     Dates: start: 20190904, end: 20190906
  27. FILGRASTIM [Concomitant]
     Active Substance: FILGRASTIM
     Dosage: 480,UG,DAILY
     Route: 058
     Dates: start: 20190816, end: 20190823
  28. VALACYCLOVIR [Concomitant]
     Active Substance: VALACYCLOVIR HYDROCHLORIDE
     Dosage: 500,MG,DAILY
     Route: 048
     Dates: start: 20190827, end: 20190916
  29. AMLODIPINE [Concomitant]
     Active Substance: AMLODIPINE BESYLATE
     Dosage: 5,MG,DAILY
     Route: 048
     Dates: start: 20190902, end: 20190916
  30. SENNA [SENNA ALEXANDRINA] [Concomitant]
     Active Substance: SENNA LEAF
     Dosage: 2,OTHER,DAILY
     Route: 048
     Dates: start: 20190904, end: 20190916
  31. RITUXIMAB. [Suspect]
     Active Substance: RITUXIMAB
     Indication: DOUBLE HIT LYMPHOMA
     Dosage: UNK
     Route: 065
     Dates: start: 20190212, end: 20190605
  32. ETOPOSIDE PHOSPHATE [Suspect]
     Active Substance: ETOPOSIDE PHOSPHATE
     Indication: DOUBLE HIT LYMPHOMA
     Dosage: UNK
     Route: 065
     Dates: start: 20190212, end: 20190605
  33. LIDOCAINE. [Concomitant]
     Active Substance: LIDOCAINE
     Dosage: 10,ML,ONCE
     Route: 061
     Dates: start: 20190808, end: 20190808
  34. ONDANSETRON [Concomitant]
     Active Substance: ONDANSETRON
     Dosage: 16,MG,ONCE
     Route: 042
     Dates: start: 20190809, end: 20190811
  35. ACETAMINOPHEN. [Concomitant]
     Active Substance: ACETAMINOPHEN
     Dosage: 650,MG,ONCE
     Route: 048
     Dates: start: 20190818, end: 20190820
  36. ACETAMINOPHEN. [Concomitant]
     Active Substance: ACETAMINOPHEN
     Dosage: 650,MG,ONCE
     Route: 048
     Dates: start: 20190904, end: 20190904
  37. MORPHINE [Concomitant]
     Active Substance: MORPHINE
     Dosage: 2,MG,AS NECESSARY
     Route: 042
     Dates: start: 20190903, end: 20190904
  38. MORPHINE [Concomitant]
     Active Substance: MORPHINE
     Dosage: 15,MG,AS NECESSARY
     Route: 048
     Dates: start: 20190905, end: 20190906
  39. MESNA. [Suspect]
     Active Substance: MESNA
     Dosage: 500
     Route: 042
     Dates: start: 20190810, end: 20190811
  40. DIPHENHYDRAMINE. [Concomitant]
     Active Substance: DIPHENHYDRAMINE
     Dosage: 50,MG,ONCE
     Route: 042
     Dates: start: 20190814, end: 20190814
  41. SENOKOT?S [Concomitant]
     Active Substance: DOCUSATE SODIUM\SENNOSIDES
     Dosage: 1,OTHER,AS NECESSARY
     Route: 048
     Dates: start: 20190814, end: 20190814
  42. SODIUM BICARBONATE;SODIUM CHLORIDE [Concomitant]
     Active Substance: SODIUM BICARBONATE\SODIUM CHLORIDE
     Dosage: 10,ML,OTHER
     Route: 050
     Dates: start: 20190814, end: 20190814
  43. MORPHINE [Concomitant]
     Active Substance: MORPHINE
     Dosage: 7.5,MG,AS NECESSARY
     Route: 048
     Dates: start: 20190908, end: 20190908
  44. CYCLOPHOSPHAMIDE. [Suspect]
     Active Substance: CYCLOPHOSPHAMIDE
     Indication: BONE MARROW CONDITIONING REGIMEN
     Dosage: 500
     Route: 042
     Dates: start: 20190809, end: 20190809
  45. VINCRISTINE SULFATE. [Suspect]
     Active Substance: VINCRISTINE SULFATE
     Indication: DOUBLE HIT LYMPHOMA
     Dosage: UNK
     Route: 065
     Dates: start: 20190212, end: 20190605
  46. CYCLOPHOSPHAMIDE. [Suspect]
     Active Substance: CYCLOPHOSPHAMIDE
     Indication: DOUBLE HIT LYMPHOMA
     Dosage: UNK
     Route: 065
     Dates: start: 20190212, end: 20190605
  47. ONDANSETRON [Concomitant]
     Active Substance: ONDANSETRON
     Dosage: 8,MG,ONCE
     Route: 042
     Dates: start: 20190926, end: 20190926
  48. ENOXAPARIN [Concomitant]
     Active Substance: ENOXAPARIN
     Dosage: 40,MG,DAILY
     Route: 058
     Dates: start: 20190813, end: 20190819
  49. FLUCONAZOLE. [Concomitant]
     Active Substance: FLUCONAZOLE
     Dosage: 200,MG,DAILY
     Route: 048
     Dates: start: 20190814, end: 20190823
  50. MORPHINE [Concomitant]
     Active Substance: MORPHINE
     Dosage: 15,MG,ONCE
     Route: 048
     Dates: start: 20190904, end: 20190904
  51. FLUDARABINE [Suspect]
     Active Substance: FLUDARABINE PHOSPHATE
     Indication: BONE MARROW CONDITIONING REGIMEN
     Dosage: 30
     Route: 042
     Dates: start: 20190809, end: 20190809
  52. FLUDARABINE [Suspect]
     Active Substance: FLUDARABINE PHOSPHATE
     Dosage: 30
     Route: 042
     Dates: start: 20190811, end: 20190811
  53. MESNA. [Suspect]
     Active Substance: MESNA
     Indication: PROPHYLAXIS
     Dosage: 500
     Route: 042
     Dates: start: 20190809, end: 20190810
  54. ENOXAPARIN [Concomitant]
     Active Substance: ENOXAPARIN
     Dosage: 100,MG,TWICE DAILY
     Route: 058
     Dates: start: 20190905, end: 20190910
  55. PANTOPRAZOLE [Concomitant]
     Active Substance: PANTOPRAZOLE
     Dosage: 40,MG,DAILY
     Route: 042
     Dates: start: 20190822, end: 20190827
  56. ALLOPURINOL. [Concomitant]
     Active Substance: ALLOPURINOL
     Dosage: 300,MG,DAILY
     Route: 048
     Dates: start: 20190813, end: 20190821
  57. ACETAMINOPHEN. [Concomitant]
     Active Substance: ACETAMINOPHEN
     Dosage: 650,MG,ONCE
     Route: 048
     Dates: start: 20190814, end: 20190814

REACTIONS (8)
  - Myelodysplastic syndrome [Not Recovered/Not Resolved]
  - Cytokine release syndrome [Recovered/Resolved]
  - Pyrexia [Recovered/Resolved]
  - Atrial fibrillation [Recovered/Resolved]
  - Hypotension [Recovered/Resolved]
  - Hypoxia [Recovered/Resolved]
  - Encephalopathy [Recovered/Resolved]
  - Acute kidney injury [Recovered/Resolved]

NARRATIVE: CASE EVENT DATE: 20190816
